FAERS Safety Report 12658101 (Version 5)
Quarter: 2016Q3

REPORT INFORMATION
  Report Type: Spontaneous
  Country: US (occurrence: US)
  Receive Date: 20160817
  Receipt Date: 20160908
  Transmission Date: 20161109
  Serious: No
  Sender: FDA-Public Use
  Company Number: US-ALEXION-A201605905

PATIENT
  Age: 16 Year
  Sex: Male

DRUGS (1)
  1. STRENSIQ [Suspect]
     Active Substance: ASFOTASE ALFA
     Indication: HYPOPHOSPHATASIA
     Dosage: 2 MG/KG, TIW
     Route: 058
     Dates: start: 201512, end: 20160811

REACTIONS (8)
  - Injection site erythema [Unknown]
  - Injection site oedema [Unknown]
  - Skin disorder [Unknown]
  - Induration [Unknown]
  - Seroma [Unknown]
  - Injection site reaction [Not Recovered/Not Resolved]
  - Injection site discolouration [Unknown]
  - Injection site plaque [Not Recovered/Not Resolved]

NARRATIVE: CASE EVENT DATE: 20160825
